FAERS Safety Report 7270207-7 (Version None)
Quarter: 2011Q1

REPORT INFORMATION
  Report Type: 
  Country: None (occurrence: None)
  Receive Date: 20110202
  Receipt Date: 20110127
  Transmission Date: 20110831
  Serious: Yes (Other)
  Sender: FDA-Public Use
  Company Number: FR-SANOFI-AVENTIS-2011SA005823

PATIENT
  Sex: Male

DRUGS (2)
  1. XATRAL [Suspect]
     Route: 048
     Dates: start: 20101201, end: 20110101
  2. XATRAL [Suspect]
     Route: 048
     Dates: start: 20100101, end: 20100101

REACTIONS (2)
  - OPTIC NEUROPATHY [None]
  - VISUAL ACUITY REDUCED [None]
